FAERS Safety Report 26162976 (Version 1)
Quarter: 2025Q4

REPORT INFORMATION
  Report Type: Report from Study
  Country: CO (occurrence: CO)
  Receive Date: 20251216
  Receipt Date: 20251216
  Transmission Date: 20260118
  Serious: Yes (Other)
  Sender: ABBVIE
  Company Number: CO-ABBVIE-6589685

PATIENT

DRUGS (4)
  1. VENETOCLAX [Suspect]
     Active Substance: VENETOCLAX
     Indication: Product used for unknown indication
     Route: 048
  2. OBINUTUZUMAB [Suspect]
     Active Substance: OBINUTUZUMAB
     Indication: Product used for unknown indication
     Dosage: INFUSIONS
     Route: 042
  3. RITUXIMAB [Suspect]
     Active Substance: RITUXIMAB
     Indication: Product used for unknown indication
     Dosage: INFUSIONS
     Route: 042
  4. IBRUTINIB [Suspect]
     Active Substance: IBRUTINIB
     Indication: Product used for unknown indication
     Route: 048

REACTIONS (8)
  - Disease risk factor [Unknown]
  - Arrhythmia [Unknown]
  - Hypertension [Unknown]
  - Haemorrhage [Unknown]
  - Drug interaction [Unknown]
  - Neutropenia [Not Recovered/Not Resolved]
  - Infusion related reaction [Unknown]
  - Disease risk factor [Unknown]
